FAERS Safety Report 11702387 (Version 1)
Quarter: 2015Q4

REPORT INFORMATION
  Report Type: Other
  Country: KR (occurrence: KR)
  Receive Date: 20151105
  Receipt Date: 20151105
  Transmission Date: 20160304
  Serious: Yes (Other)
  Sender: FDA-Public Use
  Company Number: KR-SEPTODONT-201503071

PATIENT
  Age: 67 Year
  Sex: Male

DRUGS (2)
  1. 2% LIDOCAINE WITH 1:80 000 EPINEPHRINE [Suspect]
     Active Substance: EPINEPHRINE\LIDOCAINE
     Indication: LOCAL ANAESTHESIA
     Dosage: LIDOCAINE 2% (1.8 ML CONTAINING 1:80,000 EPINEPHRINE) WAS INJECTED INTO EACH SIDE OF?THE UPPER JAW.
     Route: 004
  2. LOSARTAN. [Concomitant]
     Active Substance: LOSARTAN
     Indication: HYPERTENSION
     Dosage: FOR ONE YEAR

REACTIONS (4)
  - Optic ischaemic neuropathy [Not Recovered/Not Resolved]
  - Visual acuity reduced [Recovering/Resolving]
  - Pain [Unknown]
  - Pupillary reflex impaired [Not Recovered/Not Resolved]
